FAERS Safety Report 9985432 (Version 3)
Quarter: 2014Q1

REPORT INFORMATION
  Report Type: Other
  Country: GB (occurrence: GB)
  Receive Date: 20140307
  Receipt Date: 20140324
  Transmission Date: 20141002
  Serious: Yes (Hospitalization)
  Sender: FDA-Public Use
  Company Number: GB-TAKEDA-2014TJP001058

PATIENT
  Age: 72 Year
  Sex: Female

DRUGS (14)
  1. LANSOPRAZOLE [Suspect]
     Indication: PRODUCT USED FOR UNKNOWN INDICATION
     Dosage: 30 MG, QID
     Route: 048
     Dates: start: 20131101, end: 20140110
  2. ALLOPURINOL [Suspect]
     Indication: GOUT
     Dosage: 300 MG, QD
     Route: 048
     Dates: start: 20131101, end: 20140110
  3. ARANESP [Suspect]
     Indication: NEPHROGENIC ANAEMIA
     Dosage: 100 ?G, 1/WEEK
     Route: 058
     Dates: start: 20131014
  4. INDAPAMIDE [Concomitant]
  5. FUROSEMIDE [Concomitant]
  6. SALBUTAMOL [Concomitant]
  7. RAMIPRIL [Concomitant]
  8. ACETYLSALICYLIC ACID [Concomitant]
  9. SIMVASTATIN [Concomitant]
  10. DOSULEPIN [Concomitant]
  11. SERETIDE [Concomitant]
  12. TIOTROPIUM [Concomitant]
  13. AMINOPHYLLINE [Concomitant]
  14. NOVOMIX [Concomitant]

REACTIONS (9)
  - Pruritus generalised [Unknown]
  - Dermatitis exfoliative [Recovered/Resolved]
  - Rash erythematous [Unknown]
  - Wheezing [Unknown]
  - Eczema [Unknown]
  - Drug eruption [Unknown]
  - Lymphocytic infiltration [Unknown]
  - Parakeratosis [Unknown]
  - Skin exfoliation [Unknown]
